FAERS Safety Report 23405337 (Version 1)
Quarter: 2024Q1

REPORT INFORMATION
  Report Type: Spontaneous
  Country: US (occurrence: US)
  Receive Date: 20240116
  Receipt Date: 20240116
  Transmission Date: 20240410
  Serious: No
  Sender: FDA-Public Use
  Company Number: US-BAYER-2024A003213

PATIENT
  Age: 16 Year
  Sex: Female

DRUGS (7)
  1. MIRALAX [Suspect]
     Active Substance: POLYETHYLENE GLYCOL 3350
     Indication: Faecaloma
     Dosage: UNK
     Dates: start: 2023
  2. MIRALAX [Suspect]
     Active Substance: POLYETHYLENE GLYCOL 3350
     Indication: Constipation
  3. DUPIXENT [Concomitant]
     Active Substance: DUPILUMAB
     Indication: Irritable bowel syndrome
     Dosage: 300 MG, OW
     Route: 058
     Dates: start: 202310
  4. DUPIXENT [Concomitant]
     Active Substance: DUPILUMAB
     Indication: Ulcer
  5. DUPIXENT [Concomitant]
     Active Substance: DUPILUMAB
     Indication: Eosinophilic oesophagitis
  6. AMITIZA [Concomitant]
     Active Substance: LUBIPROSTONE
     Indication: Faecaloma
     Dosage: UNK
     Dates: start: 2023
  7. AMITIZA [Concomitant]
     Active Substance: LUBIPROSTONE
     Indication: Constipation

REACTIONS (5)
  - Vomiting [Recovered/Resolved]
  - Pain [Recovered/Resolved]
  - Diarrhoea [Recovered/Resolved]
  - Product use in unapproved indication [Recovered/Resolved]
  - Product dose omission issue [Recovered/Resolved]

NARRATIVE: CASE EVENT DATE: 20231101
